FAERS Safety Report 6586630-X (Version None)
Quarter: 2010Q1

REPORT INFORMATION
  Report Type: 
  Country: None (occurrence: None)
  Receive Date: 20100217
  Receipt Date: 20090330
  Transmission Date: 20100710
  Serious: No
  Sender: FDA-Public Use
  Company Number: US-ALLERGAN-0904326US

PATIENT
  Age: 51 Year
  Sex: Male

DRUGS (5)
  1. BOTOX [Suspect]
     Indication: BLEPHAROSPASM
     Dosage: 100 UNITS, SINGLE
     Route: 030
     Dates: start: 20090320, end: 20090320
  2. CLONAZEPAM [Concomitant]
     Dosage: 1 MG, BID-TID
  3. SIMVASTATIN [Concomitant]
     Dosage: 10 MG, QD
  4. FUROSEMIDE [Concomitant]
     Dosage: 20 MG, QD
  5. BUPROPION [Concomitant]
     Dosage: 150 MG, QD

REACTIONS (3)
  - EYELID PTOSIS [None]
  - HEADACHE [None]
  - VISION BLURRED [None]
